FAERS Safety Report 6344558-4 (Version None)
Quarter: 2009Q3

REPORT INFORMATION
  Report Type: 
  Country: None (occurrence: None)
  Receive Date: 20090903
  Receipt Date: 20090527
  Transmission Date: 20100115
  Serious: Yes (Other)
  Sender: FDA-Public Use
  Company Number: 2009-198086-NL

PATIENT
  Age: 29 Year
  Sex: Female
  Weight: 59 kg

DRUGS (1)
  1. NUVARING [Suspect]
     Indication: CONTRACEPTION
     Dates: start: 20010101, end: 20060101

REACTIONS (7)
  - ABORTION SPONTANEOUS [None]
  - DRUG EXPOSURE DURING PREGNANCY [None]
  - GASTROENTERITIS VIRAL [None]
  - PREGNANCY [None]
  - THROMBOSIS [None]
  - TONGUE ULCERATION [None]
  - VAGINAL DISCHARGE [None]
